FAERS Safety Report 10024211 (Version 2)
Quarter: 2014Q1

REPORT INFORMATION
  Report Type: Spontaneous
  Country: US (occurrence: None)
  Receive Date: 20140127
  Receipt Date: 20140219
  Transmission Date: 20141002
  Serious: No
  Sender: FDA-Public Use
  Company Number: 3002719998-2014-001

PATIENT
  Age: 54 Year
  Sex: Female

DRUGS (4)
  1. DERMISA CLEAR SKIN [Suspect]
     Indication: SOFT TISSUE DISORDER
  2. UNKNOWN COMPETITOR^S PRODUCT [Concomitant]
  3. BARD URETEX SUP [Concomitant]
  4. PROLENE MESH [Concomitant]

REACTIONS (6)
  - Vaginal haemorrhage [None]
  - Urge incontinence [None]
  - Micturition urgency [None]
  - Pelvic pain [None]
  - Foreign body [None]
  - Hysterectomy [None]
